FAERS Safety Report 25232901 (Version 1)
Quarter: 2025Q2

REPORT INFORMATION
  Report Type: Spontaneous
  Country: PT (occurrence: PT)
  Receive Date: 20250424
  Receipt Date: 20250424
  Transmission Date: 20250717
  Serious: Yes (Hospitalization, Other)
  Sender: RANBAXY
  Company Number: PT-SUN PHARMACEUTICAL INDUSTRIES LTD-2025R1-505147

PATIENT
  Age: 59 Year
  Sex: Male

DRUGS (4)
  1. ASPIRIN [Suspect]
     Active Substance: ASPIRIN
     Indication: Malaria
     Route: 065
  2. FOLIC ACID [Suspect]
     Active Substance: FOLIC ACID
     Indication: Malaria
     Route: 065
  3. ARTEMETHER [Suspect]
     Active Substance: ARTEMETHER
     Indication: Malaria
     Route: 065
  4. LUMEFANTRINE [Suspect]
     Active Substance: LUMEFANTRINE
     Indication: Malaria
     Route: 065

REACTIONS (2)
  - Hypochromic anaemia [Unknown]
  - Hepatic enzyme increased [Unknown]
